FAERS Safety Report 9676082 (Version 1)
Quarter: 2013Q4

REPORT INFORMATION
  Report Type: Spontaneous
  Country: US (occurrence: US)
  Receive Date: 20131107
  Receipt Date: 20131107
  Transmission Date: 20140711
  Serious: Yes (Hospitalization, Other)
  Sender: FDA-Public Use
  Company Number: US-BAXTER-2013BAX043149

PATIENT
  Age: 59 Year
  Sex: Female

DRUGS (10)
  1. GAMMAGARD S/D [Suspect]
     Indication: IMMUNODEFICIENCY COMMON VARIABLE
     Route: 042
     Dates: start: 20131029, end: 20131029
  2. GAMMAGARD S/D [Suspect]
     Route: 042
     Dates: start: 1990
  3. GAMMAGARD S/D [Suspect]
     Route: 058
  4. PREDNISONE [Concomitant]
     Indication: PRODUCT USED FOR UNKNOWN INDICATION
     Route: 048
  5. SYNTHROID [Concomitant]
     Indication: THYROID CANCER
     Route: 048
     Dates: start: 1996
  6. CYTOMEL [Concomitant]
     Indication: THYROID CANCER
     Route: 048
     Dates: start: 1996
  7. LOVENOX [Concomitant]
     Indication: PROTEIN C DEFICIENCY
     Route: 058
     Dates: start: 1990
  8. LOVENOX [Concomitant]
     Indication: PULMONARY EMBOLISM
  9. LAMICTAL [Concomitant]
     Indication: CONVULSION
     Route: 048
     Dates: start: 2013
  10. FIORICET [Concomitant]
     Indication: HEADACHE
     Route: 048
     Dates: start: 2006

REACTIONS (5)
  - Haemoptysis [Recovered/Resolved]
  - Chest pain [Unknown]
  - Back pain [Unknown]
  - Pneumonia viral [Recovering/Resolving]
  - Rhinovirus infection [Recovering/Resolving]
